FAERS Safety Report 6585963-0 (Version None)
Quarter: 2010Q1

REPORT INFORMATION
  Report Type: 
  Country: None (occurrence: None)
  Receive Date: 20100217
  Receipt Date: 20100204
  Transmission Date: 20100710
  Serious: Yes (Other)
  Sender: FDA-Public Use
  Company Number: NL-SANOFI-AVENTIS-2010SA006880

PATIENT
  Age: 70 Year
  Sex: Female

DRUGS (8)
  1. OXALIPLATIN [Suspect]
     Indication: COLON CANCER METASTATIC
     Route: 041
  2. OXALIPLATIN [Suspect]
     Route: 041
  3. AVASTIN [Suspect]
     Indication: COLON CANCER METASTATIC
     Route: 041
  4. AVASTIN [Suspect]
     Route: 041
  5. 5-FU [Suspect]
     Indication: COLON CANCER METASTATIC
     Route: 042
  6. 5-FU [Suspect]
     Route: 042
  7. LEUCOVORIN CALCIUM [Suspect]
     Indication: COLON CANCER METASTATIC
     Route: 041
  8. LEUCOVORIN CALCIUM [Suspect]
     Route: 041

REACTIONS (2)
  - CARDIAC FAILURE [None]
  - HYPERTENSION [None]
